FAERS Safety Report 23075256 (Version 1)
Quarter: 2023Q4

REPORT INFORMATION
  Report Type: Spontaneous
  Country: US (occurrence: US)
  Receive Date: 20231017
  Receipt Date: 20231017
  Transmission Date: 20240110
  Serious: No
  Sender: FDA-Public Use
  Company Number: US-SA-SAC20231011001184

PATIENT
  Sex: Female
  Weight: 102.99 kg

DRUGS (14)
  1. DUPIXENT [Suspect]
     Active Substance: DUPILUMAB
     Indication: Dermatitis atopic
     Dosage: 300 MG QOW
     Route: 058
  2. DUPIXENT [Suspect]
     Active Substance: DUPILUMAB
     Indication: Pruritus
  3. ALLOPURINOL [Concomitant]
     Active Substance: ALLOPURINOL
     Dosage: UNK
  4. LOSARTAN POTASSIUM [Concomitant]
     Active Substance: LOSARTAN POTASSIUM
     Dosage: 100MG
  5. CLOBETASOL [Concomitant]
     Active Substance: CLOBETASOL
     Dosage: 50MG
  6. HYDROCORTISONE [Concomitant]
     Active Substance: HYDROCORTISONE
     Dosage: 50MG
  7. ACETIC ACID [Concomitant]
     Active Substance: ACETIC ACID
     Dosage: 50MG
  8. TRIAMCINOLONE ACETONIDE [Concomitant]
     Active Substance: TRIAMCINOLONE ACETONIDE
     Indication: Dermatitis atopic
  9. ALBUTEROL SULFATE [Concomitant]
     Active Substance: ALBUTEROL SULFATE
     Dosage: 40MG
  10. OLMESARTAN MEDOXOMIL [Concomitant]
     Active Substance: OLMESARTAN MEDOXOMIL
  11. FEXOFENADINE [Concomitant]
     Active Substance: FEXOFENADINE HYDROCHLORIDE
     Dosage: 180MG
  12. HYDROXYZINE [Concomitant]
     Active Substance: HYDROXYZINE HYDROCHLORIDE
     Indication: Pruritus
     Dosage: 50MG
  13. ASPIRIN [Concomitant]
     Active Substance: ASPIRIN
     Dosage: 50MG
  14. CLONIDINE [Concomitant]
     Active Substance: CLONIDINE
     Dosage: 01MG

REACTIONS (5)
  - Hypersensitivity [Unknown]
  - Dermatitis atopic [Unknown]
  - Pruritus [Unknown]
  - Swelling [Unknown]
  - Skin haemorrhage [Unknown]
